FAERS Safety Report 13601631 (Version 1)
Quarter: 2017Q2

REPORT INFORMATION
  Report Type: Spontaneous
  Country: JP (occurrence: JP)
  Receive Date: 20170601
  Receipt Date: 20170601
  Transmission Date: 20170830
  Serious: Yes (Other)
  Sender: FDA-Public Use
  Company Number: JP-PFIZER INC-2017057800

PATIENT
  Age: 16 Year
  Sex: Female
  Weight: 42.4 kg

DRUGS (5)
  1. PREDNISOLONE. [Suspect]
     Active Substance: PREDNISOLONE
     Dosage: 2 MG/KG/DAY
     Route: 048
  2. CYCLOPHOSPHAMIDE. [Suspect]
     Active Substance: CYCLOPHOSPHAMIDE
     Dosage: 1 COURSE = 500 MG/M2/DAY X 1 DAY/MONTH
     Route: 042
  3. METHOTREXATE. [Suspect]
     Active Substance: METHOTREXATE
     Dosage: 10 MG/M2/ WEEK
  4. METHYLPREDNISOLONE. [Suspect]
     Active Substance: METHYLPREDNISOLONE
     Dosage: THREE COURSES OF METHYLPREDNISOLONE PULSE THERAPY (ONE COURSE = 30 MG/KG/DAY X 3 DAYS/WEEK)
  5. PREDNISOLONE. [Suspect]
     Active Substance: PREDNISOLONE
     Dosage: 0.2 MG/KG/DAY (LOW-DOSE)
     Route: 048

REACTIONS (1)
  - Growth retardation [Unknown]
